FAERS Safety Report 11994934 (Version 6)
Quarter: 2016Q2

REPORT INFORMATION
  Report Type: Spontaneous
  Country: US (occurrence: US)
  Receive Date: 20160203
  Receipt Date: 20160513
  Transmission Date: 20160815
  Serious: Yes (Hospitalization)
  Sender: FDA-Public Use
  Company Number: US-ACTELION PHARMACEUTICALS US, INC.-A-NJ2016-130707

PATIENT
  Age: 70 Year
  Sex: Female
  Weight: 82.54 kg

DRUGS (6)
  1. UPTRAVI [Suspect]
     Active Substance: SELEXIPAG
     Dosage: 1600 MCG, BID
     Route: 048
     Dates: start: 20160201, end: 20160412
  2. COUMADIN [Concomitant]
     Active Substance: WARFARIN SODIUM
  3. ADCIRCA [Concomitant]
     Active Substance: TADALAFIL
     Dosage: 40 MG, QD
     Route: 048
     Dates: start: 2015
  4. OXYGEN. [Concomitant]
     Active Substance: OXYGEN
     Dosage: 5 L, CONT INFUS
  5. UPTRAVI [Suspect]
     Active Substance: SELEXIPAG
     Indication: PULMONARY ARTERIAL HYPERTENSION
     Dosage: 200 MCG, BID
     Route: 048
     Dates: start: 20160120
  6. MORPHINE [Suspect]
     Active Substance: MORPHINE
     Indication: PRODUCT USED FOR UNKNOWN INDICATION
     Route: 065

REACTIONS (12)
  - Infection [Unknown]
  - Overdose [Recovered/Resolved]
  - No therapeutic response [Unknown]
  - Nausea [Unknown]
  - Abdominal pain [Unknown]
  - Insomnia [Unknown]
  - Pulmonary arterial pressure increased [Unknown]
  - Pyrexia [Unknown]
  - Headache [Recovering/Resolving]
  - Fatigue [Unknown]
  - Rash [Recovered/Resolved]
  - Flushing [Recovering/Resolving]

NARRATIVE: CASE EVENT DATE: 20160121
